FAERS Safety Report 17297868 (Version 1)
Quarter: 2020Q1

REPORT INFORMATION
  Report Type: Spontaneous
  Country: NL (occurrence: NL)
  Receive Date: 20200122
  Receipt Date: 20200122
  Transmission Date: 20200409
  Serious: Yes (Other)
  Sender: FDA-Public Use
  Company Number: NL-TEVA-2020-NL-1171305

PATIENT
  Sex: Female

DRUGS (4)
  1. FLUTICASON PROPIONAAT 50MCG NEUSSPRAY [Suspect]
     Active Substance: FLUTICASONE PROPIONATE
     Indication: NASAL CONGESTION
     Dosage: IN THE EVENING 2 PUFFS IN EACH NOSTRIL (100 MCG PER DAY)
     Dates: start: 201801
  2. SUMATRIPTAN 50MG [Concomitant]
     Active Substance: SUMATRIPTAN
     Dosage: 50MG IF NECESSARY
  3. IMIGRAN INJECTIE [Concomitant]
     Dosage: 1 DOSAGE FORMS, IF NECESSARY,
  4. TOPAMAX [Concomitant]
     Active Substance: TOPIRAMATE
     Dosage: 4X25MG
     Dates: start: 2005

REACTIONS (2)
  - Fungal oesophagitis [Not Recovered/Not Resolved]
  - Abdominal pain upper [Not Recovered/Not Resolved]
